FAERS Safety Report 11870650 (Version 2)
Quarter: 2017Q4

REPORT INFORMATION
  Report Type: Spontaneous
  Country: US (occurrence: US)
  Receive Date: 20151228
  Receipt Date: 20171106
  Transmission Date: 20180320
  Serious: Yes (Life-Threatening, Hospitalization, Other)
  Sender: FDA-Public Use
  Company Number: US-SANOFI-AVENTIS-2012SA018627

PATIENT
  Age: 61 Year
  Sex: Female

DRUGS (11)
  1. PLAVIX [Suspect]
     Active Substance: CLOPIDOGREL BISULFATE
     Indication: ARTERIAL OCCLUSIVE DISEASE
     Route: 048
     Dates: start: 20101207
  2. FUROSEMIDE. [Concomitant]
     Active Substance: FUROSEMIDE
  3. METOPROLOL. [Concomitant]
     Active Substance: METOPROLOL
  4. HYDROCHLOROTHIAZIDE/LISINOPRIL [Concomitant]
     Dosage: 25/20 MG ONCE A DAY
     Route: 065
  5. COLLAGENASE [Concomitant]
     Active Substance: COLLAGENASE CLOSTRIDIUM HISTOLYTICUM
     Route: 061
  6. BENADRYL [Concomitant]
     Active Substance: DIPHENHYDRAMINE HYDROCHLORIDE
     Route: 065
  7. POTASSIUM CHLORIDE. [Concomitant]
     Active Substance: POTASSIUM CHLORIDE
  8. LOPRESSOR [Concomitant]
     Active Substance: METOPROLOL TARTRATE
     Route: 065
  9. ASPIRIN. [Suspect]
     Active Substance: ASPIRIN
     Route: 065
     Dates: start: 201012
  10. METFORMIN [Concomitant]
     Active Substance: METFORMIN HYDROCHLORIDE
     Route: 065
  11. BACTRIM DS [Concomitant]
     Active Substance: SULFAMETHOXAZOLE\TRIMETHOPRIM
     Route: 065

REACTIONS (17)
  - Large intestine polyp [Unknown]
  - Haemoglobin decreased [Unknown]
  - Erosive oesophagitis [Unknown]
  - Haemoptysis [Unknown]
  - Dizziness [Unknown]
  - Haematochezia [Unknown]
  - Gastritis erosive [Unknown]
  - Urinary incontinence [Unknown]
  - Syncope [Unknown]
  - Haematoma [Unknown]
  - Wound infection [Recovering/Resolving]
  - Gastrointestinal haemorrhage [Unknown]
  - Rectal haemorrhage [Unknown]
  - Large intestinal ulcer [Unknown]
  - Headache [Unknown]
  - Head injury [Unknown]
  - Gastritis [Unknown]

NARRATIVE: CASE EVENT DATE: 20110110
